FAERS Safety Report 17350966 (Version 1)
Quarter: 2020Q1

REPORT INFORMATION
  Report Type: Spontaneous
  Country: DE (occurrence: DE)
  Receive Date: 20200130
  Receipt Date: 20200130
  Transmission Date: 20200409
  Serious: Yes (Other)
  Sender: FDA-Public Use
  Company Number: DE-TORRENT-00016674

PATIENT
  Age: 1 Day
  Sex: Male
  Weight: 2 kg

DRUGS (6)
  1. DIAZEPAM. [Concomitant]
     Active Substance: DIAZEPAM
     Indication: ANXIETY
     Dosage: 15 [MG/D ]/ IF REQUIRED, 2X15 GTTS/D 2 SEPARATED DOSES
     Route: 064
     Dates: start: 20180528, end: 20190213
  2. BISOPROLOL [Suspect]
     Active Substance: BISOPROLOL
     Indication: HYPERTENSION
     Dosage: 2.5 [MG/D ]
     Route: 064
     Dates: start: 20180528, end: 20190213
  3. L-THYROX [Concomitant]
     Active Substance: LEVOTHYROXINE SODIUM
     Indication: HYPOTHYROIDISM
     Dosage: 50 [G/D ]/ INITIAL 25G/D, DOSAGE INCREASE TO 50G/D
     Route: 064
     Dates: start: 20180528, end: 20190213
  4. FOLIO FORTE [Concomitant]
     Active Substance: FOLIC ACID\VITAMINS
     Indication: PROPHYLAXIS OF NEURAL TUBE DEFECT
     Dosage: 0.8 [MG/D ]
     Route: 064
     Dates: start: 20180528, end: 20190213
  5. ORFIRIL RETARD [Suspect]
     Active Substance: VALPROIC ACID
     Indication: EPILEPSY
     Dosage: 600 [MG/D ]/ INITIAL 2X300MG DAILY, DOSAGE REDUCTION TO 45MG/D AND FURTHER TO 30MG/D
     Route: 064
     Dates: start: 20180528, end: 20190213
  6. CITALOPRAM [Suspect]
     Active Substance: CITALOPRAM HYDROBROMIDE
     Indication: DEPRESSION
     Dosage: 20 [MG/D ]/ INITIAL 10MG/D, DOSAGE INCREASED FROM WEEK 24
     Route: 064
     Dates: start: 20181010, end: 20190213

REACTIONS (3)
  - Small for dates baby [Recovered/Resolved]
  - Foetal exposure during pregnancy [Unknown]
  - Hypoglycaemia [Recovered/Resolved]

NARRATIVE: CASE EVENT DATE: 20180528
